FAERS Safety Report 11107395 (Version 4)
Quarter: 2016Q1

REPORT INFORMATION
  Report Type: Spontaneous
  Country: CO (occurrence: CO)
  Receive Date: 20150512
  Receipt Date: 20160223
  Transmission Date: 20160525
  Serious: Yes (Hospitalization, Other)
  Sender: FDA-Public Use
  Company Number: CO-JNJFOC-20150506335

PATIENT
  Age: 65 Year
  Sex: Male
  Weight: 43 kg

DRUGS (5)
  1. BISACODYL. [Concomitant]
     Active Substance: BISACODYL
     Route: 065
  2. ALENDRONATE [Concomitant]
     Active Substance: ALENDRONATE SODIUM
     Route: 065
  3. SIMPONI [Suspect]
     Active Substance: GOLIMUMAB
     Indication: RHEUMATOID ARTHRITIS
     Route: 058
     Dates: start: 20130919, end: 201505
  4. FOLIC ACID. [Concomitant]
     Active Substance: FOLIC ACID
     Route: 065
  5. SIMPONI [Suspect]
     Active Substance: GOLIMUMAB
     Indication: RHEUMATOID ARTHRITIS
     Route: 058
     Dates: end: 20151026

REACTIONS (8)
  - Haemorrhage urinary tract [Recovered/Resolved]
  - Urine abnormality [Recovered/Resolved]
  - Cervical cord compression [Not Recovered/Not Resolved]
  - Bladder disorder [Unknown]
  - Dysuria [Not Recovered/Not Resolved]
  - Pelvic pain [Unknown]
  - Depressed mood [Unknown]
  - Pain [Unknown]

NARRATIVE: CASE EVENT DATE: 20150429
